FAERS Safety Report 5387509-1 (Version None)
Quarter: 2007Q3

REPORT INFORMATION
  Report Type: 
  Country: None (occurrence: None)
  Receive Date: 20070716
  Receipt Date: 20070704
  Transmission Date: 20080115
  Serious: No
  Sender: FDA-Public Use
  Company Number: CA-AMGEN-US065612

PATIENT
  Sex: Female

DRUGS (3)
  1. KINERET [Suspect]
     Indication: RHEUMATOID ARTHRITIS
     Route: 058
     Dates: start: 20030811
  2. METHOTREXATE [Concomitant]
     Route: 065
     Dates: start: 19930110
  3. PREDNISONE [Concomitant]
     Route: 065
     Dates: start: 19960802

REACTIONS (1)
  - SJOGREN'S SYNDROME [None]
